FAERS Safety Report 24732057 (Version 1)
Quarter: 2024Q4

REPORT INFORMATION
  Report Type: Spontaneous
  Country: RO (occurrence: RO)
  Receive Date: 20241213
  Receipt Date: 20241213
  Transmission Date: 20250115
  Serious: Yes (Other)
  Sender: BAYER HEALTHCARE PHARMACEUTICALS INC.
  Company Number: RO-BAYER-2024A173415

PATIENT
  Age: 49 Year
  Sex: Male
  Weight: 80 kg

DRUGS (1)
  1. NEXAVAR [Suspect]
     Active Substance: SORAFENIB
     Indication: Hepatocellular carcinoma
     Dosage: 800 MG/DAY
     Dates: start: 202003, end: 202404

REACTIONS (10)
  - Hepatocellular carcinoma [None]
  - Hepatic mass [None]
  - Hepatic perfusion disorder [None]
  - Neoplasm recurrence [None]
  - Neoplasm recurrence [None]
  - Alpha 1 foetoprotein increased [None]
  - Thrombosis [None]
  - Essential hypertension [None]
  - Palmar-plantar erythrodysaesthesia syndrome [None]
  - Hypocalcaemia [None]

NARRATIVE: CASE EVENT DATE: 20211001
